FAERS Safety Report 4373794-1 (Version None)
Quarter: 2004Q2

REPORT INFORMATION
  Report Type: 
  Country: None (occurrence: None)
  Receive Date: 20040603
  Receipt Date: 20040521
  Transmission Date: 20050107
  Serious: Yes (Other)
  Sender: FDA-Public Use
  Company Number: K200400789

PATIENT
  Sex: Female

DRUGS (1)
  1. ALTACE [Suspect]
     Indication: ESSENTIAL HYPERTENSION
     Dosage: SEE IMAGE
     Route: 048

REACTIONS (2)
  - ANGIONEUROTIC OEDEMA [None]
  - ERYTHEMA [None]
